FAERS Safety Report 9311964 (Version 4)
Quarter: 2013Q4

REPORT INFORMATION
  Report Type: Report from Study
  Country: JP (occurrence: JP)
  Receive Date: 20130528
  Receipt Date: 20131206
  Transmission Date: 20140711
  Serious: Yes (Other)
  Sender: FDA-Public Use
  Company Number: JP-AMGEN-JPNCT2013037438

PATIENT
  Age: 68 Year
  Sex: Male
  Weight: 72 kg

DRUGS (28)
  1. ROMIPLOSTIM [Suspect]
     Indication: IMMUNE THROMBOCYTOPENIC PURPURA
     Dosage: 2 MUG/KG, Q2WK
     Route: 058
     Dates: start: 20120817, end: 20130722
  2. PREDNISOLONE [Concomitant]
     Indication: IMMUNE THROMBOCYTOPENIC PURPURA
     Dosage: 2.5 MG, UNK
     Route: 048
     Dates: start: 20120808, end: 20121015
  3. ADONA [Concomitant]
     Indication: IMMUNE THROMBOCYTOPENIC PURPURA
     Dosage: 90 MG, UNK
     Route: 048
     Dates: start: 20120810, end: 20120930
  4. TRANSAMIN [Concomitant]
     Indication: IMMUNE THROMBOCYTOPENIC PURPURA
     Dosage: 750 MG, UNK
     Route: 048
     Dates: start: 20120810, end: 20120930
  5. VENILON I [Concomitant]
     Indication: IMMUNE THROMBOCYTOPENIC PURPURA
     Dosage: 2000 MG, UNK
     Route: 065
     Dates: start: 20120727, end: 20120920
  6. MUCOSTA [Concomitant]
     Indication: PROPHYLAXIS
     Dosage: UNK
     Route: 065
  7. BAKTAR [Concomitant]
     Indication: PROPHYLAXIS
     Dosage: UNK
     Route: 065
  8. PNEUMOVAX [Concomitant]
     Indication: PROPHYLAXIS
     Dosage: UNK
     Route: 065
  9. URINORM [Concomitant]
     Indication: PROPHYLAXIS
     Dosage: UNK
     Route: 048
  10. PLATELETS [Concomitant]
     Dosage: UNK
     Dates: start: 20120727, end: 20120727
  11. URALYT                             /01779901/ [Concomitant]
     Indication: HYPERURICAEMIA
     Dosage: UNK
     Route: 048
  12. MOHRUS [Concomitant]
     Indication: BACK PAIN
     Dosage: UNK
     Route: 062
  13. MAGCOROL [Concomitant]
     Indication: PROPHYLAXIS
     Dosage: 1 DF, QD
     Route: 048
     Dates: start: 20130728
  14. PURSENNID                          /00142207/ [Concomitant]
     Indication: PROPHYLAXIS
     Dosage: 24 MG, QD
     Route: 048
     Dates: start: 20130728
  15. FLOMOX                             /01418603/ [Concomitant]
     Indication: PROPHYLAXIS
     Dosage: 100 MG, TID
     Route: 048
     Dates: start: 20130801, end: 20130804
  16. BAYASPIRIN [Concomitant]
     Indication: PROPHYLAXIS
     Dosage: 100 MG, QD
     Route: 048
     Dates: start: 20130801, end: 20130809
  17. VITAMEDIN                          /00176001/ [Concomitant]
     Indication: PROPHYLAXIS
     Dosage: 1 DF, UNK
     Route: 065
     Dates: start: 20130729, end: 20130731
  18. VITAMIN C                          /00008001/ [Concomitant]
     Indication: PROPHYLAXIS
     Dosage: 500 MG, UNK
     Route: 065
     Dates: start: 20130729, end: 20130731
  19. CEFAMEZIN ALPHA [Concomitant]
     Dosage: 1 G, UNK
     Route: 065
     Dates: start: 20130728, end: 20130728
  20. CEFAMEZIN ALPHA [Concomitant]
     Dosage: 2 G, UNK
     Route: 065
     Dates: start: 20130730, end: 20130731
  21. VEEN-F [Concomitant]
     Dosage: 500 ML, UNK
     Route: 065
     Dates: start: 20130728, end: 20130728
  22. VEEN-F [Concomitant]
     Dosage: 1000 ML, UNK
     Route: 065
     Dates: start: 20130729, end: 20130729
  23. VEEN-F [Concomitant]
     Dosage: 500 ML, UNK
     Route: 065
     Dates: start: 20130731, end: 20130731
  24. VEEN D [Concomitant]
     Dosage: 500 ML, UNK
     Route: 065
     Dates: start: 20130729, end: 20130729
  25. ACTIT                              /00733001/ [Concomitant]
     Dosage: 500 ML, UNK
     Route: 065
     Dates: start: 20130729, end: 20130729
  26. ACTIT                              /00733001/ [Concomitant]
     Dosage: 2000 ML, UNK
     Route: 065
     Dates: start: 20130730, end: 20130730
  27. ACTIT                              /00733001/ [Concomitant]
     Dosage: 500 ML, UNK
     Route: 065
     Dates: start: 20130731, end: 20130731
  28. SEISHOKU [Concomitant]
     Dosage: 200 ML, UNK
     Route: 065
     Dates: start: 20130729, end: 20130731

REACTIONS (6)
  - Diabetes mellitus [Recovered/Resolved]
  - Oral candidiasis [Recovering/Resolving]
  - Gastrooesophageal reflux disease [Recovered/Resolved]
  - Insomnia [Recovering/Resolving]
  - Nasopharyngitis [Recovered/Resolved]
  - Procedural pain [Recovering/Resolving]
